FAERS Safety Report 8991868 (Version 2)
Quarter: 2013Q1

REPORT INFORMATION
  Report Type: Report from Study
  Country: AR (occurrence: AR)
  Receive Date: 20121231
  Receipt Date: 20130122
  Transmission Date: 20140127
  Serious: Yes (Hospitalization, Other)
  Sender: FDA-Public Use
  Company Number: AR-ABBOTT-12P-007-1019839-00

PATIENT
  Age: 46 Year
  Sex: Male

DRUGS (2)
  1. HUMIRA [Suspect]
     Indication: RHEUMATOID ARTHRITIS
     Route: 058
     Dates: start: 20120103
  2. UNKNOWN MEDICATION [Concomitant]
     Indication: URETHRAL DISORDER

REACTIONS (3)
  - Renal colic [Recovering/Resolving]
  - Nephrolithiasis [Recovering/Resolving]
  - Renal colic [Recovered/Resolved]
